FAERS Safety Report 19747615 (Version 7)
Quarter: 2024Q1

REPORT INFORMATION
  Report Type: Spontaneous
  Country: GB (occurrence: GB)
  Receive Date: 20210825
  Receipt Date: 20240130
  Transmission Date: 20240410
  Serious: Yes (Death, Other)
  Sender: FDA-Public Use
  Company Number: None

PATIENT
  Age: 39 Year
  Sex: Male
  Weight: 91 kg

DRUGS (279)
  1. MORPHINE SULFATE [Interacting]
     Active Substance: MORPHINE SULFATE
     Indication: Product used for unknown indication
     Dosage: UNK
     Route: 050
  2. MORPHINE SULFATE [Interacting]
     Active Substance: MORPHINE SULFATE
     Dosage: UNK (OVERDOSE, MEDICATION ERROR, OFF LABEL USE); ;
     Route: 050
  3. MORPHINE SULFATE [Interacting]
     Active Substance: MORPHINE SULFATE
     Dosage: UNK
     Route: 050
  4. MORPHINE SULFATE [Interacting]
     Active Substance: MORPHINE SULFATE
     Dosage: UNK
     Route: 065
  5. MORPHINE SULFATE [Interacting]
     Active Substance: MORPHINE SULFATE
     Dosage: UNK
     Route: 050
  6. MORPHINE SULFATE [Interacting]
     Active Substance: MORPHINE SULFATE
     Dosage: UNK
     Route: 065
  7. MORPHINE SULFATE [Interacting]
     Active Substance: MORPHINE SULFATE
     Dosage: UNK (S-MORPHINE-CNS-OPIOID )
     Route: 065
  8. MORPHINE SULFATE [Interacting]
     Active Substance: MORPHINE SULFATE
     Dosage: UNK
     Route: 050
  9. BUPRENORPHINE [Interacting]
     Active Substance: BUPRENORPHINE
     Indication: Drug rehabilitation
     Dosage: UNK
     Route: 050
  10. BUPRENORPHINE [Interacting]
     Active Substance: BUPRENORPHINE
     Indication: Drug dependence
     Dosage: UNK
     Route: 050
     Dates: start: 20181027
  11. BUPRENORPHINE [Interacting]
     Active Substance: BUPRENORPHINE
     Dosage: UNK
     Route: 050
     Dates: start: 20181027
  12. BUPRENORPHINE [Interacting]
     Active Substance: BUPRENORPHINE
     Dosage: UNK
     Route: 050
     Dates: start: 20181027
  13. BUPRENORPHINE [Interacting]
     Active Substance: BUPRENORPHINE
     Dosage: UNK
     Route: 050
     Dates: start: 20181027
  14. BUPRENORPHINE [Interacting]
     Active Substance: BUPRENORPHINE
     Dosage: UNK
     Route: 065
     Dates: start: 20181027
  15. BUPRENORPHINE [Interacting]
     Active Substance: BUPRENORPHINE
     Dosage: UNK
     Route: 050
     Dates: start: 20181027
  16. BUPRENORPHINE [Interacting]
     Active Substance: BUPRENORPHINE
     Dosage: UNK
     Route: 050
     Dates: start: 20181027
  17. BUPRENORPHINE [Interacting]
     Active Substance: BUPRENORPHINE
     Dosage: UNK
     Route: 050
     Dates: start: 20181027
  18. BUPRENORPHINE [Interacting]
     Active Substance: BUPRENORPHINE
     Dosage: UNK
     Route: 050
     Dates: start: 20181027
  19. COCAINE [Suspect]
     Active Substance: COCAINE
     Indication: Drug rehabilitation
     Dosage: UNK
     Route: 065
  20. COCAINE [Suspect]
     Active Substance: COCAINE
     Indication: Product used for unknown indication
     Dosage: UNK
     Route: 065
  21. COCAINE [Suspect]
     Active Substance: COCAINE
     Dosage: UNK
     Route: 065
  22. COCAINE [Suspect]
     Active Substance: COCAINE
     Dosage: UNK
     Route: 065
  23. COCAINE [Suspect]
     Active Substance: COCAINE
     Dosage: UNK
     Route: 065
  24. COCAINE [Suspect]
     Active Substance: COCAINE
     Dosage: UNK
     Route: 065
  25. CODEINE [Interacting]
     Active Substance: CODEINE
     Indication: Product used for unknown indication
     Dosage: UNK
     Route: 065
  26. CODEINE [Interacting]
     Active Substance: CODEINE
     Dosage: UNK
     Route: 065
  27. CODEINE [Interacting]
     Active Substance: CODEINE
     Dosage: UNK
     Route: 065
  28. CODEINE [Interacting]
     Active Substance: CODEINE
     Dosage: UNK
     Route: 065
  29. CODEINE [Interacting]
     Active Substance: CODEINE
     Dosage: UNK
     Route: 065
  30. CODEINE [Interacting]
     Active Substance: CODEINE
     Dosage: UNK
     Route: 065
  31. CODEINE [Interacting]
     Active Substance: CODEINE
     Dosage: UNK
     Route: 065
  32. CODEINE [Interacting]
     Active Substance: CODEINE
     Dosage: UNK
     Route: 065
  33. CODEINE PHOSPHATE [Suspect]
     Active Substance: CODEINE PHOSPHATE
     Indication: Product used for unknown indication
     Dosage: UNK
     Route: 050
  34. CODEINE PHOSPHATE [Suspect]
     Active Substance: CODEINE PHOSPHATE
     Dosage: UNK
     Route: 050
  35. CODEINE PHOSPHATE [Suspect]
     Active Substance: CODEINE PHOSPHATE
     Dosage: UNK
     Route: 065
  36. CODEINE PHOSPHATE [Suspect]
     Active Substance: CODEINE PHOSPHATE
     Dosage: UNK
     Route: 050
  37. CODEINE PHOSPHATE [Suspect]
     Active Substance: CODEINE PHOSPHATE
     Dosage: UNK
     Route: 050
  38. CODEINE PHOSPHATE [Suspect]
     Active Substance: CODEINE PHOSPHATE
     Dosage: UNK
     Route: 050
  39. PREGABALIN [Interacting]
     Active Substance: PREGABALIN
     Indication: Product used for unknown indication
     Dosage: UNK
     Route: 065
  40. PREGABALIN [Interacting]
     Active Substance: PREGABALIN
     Indication: Product used for unknown indication
     Dosage: UNK
     Route: 065
     Dates: start: 20181027, end: 20181027
  41. PREGABALIN [Interacting]
     Active Substance: PREGABALIN
     Dosage: UNK
     Route: 065
  42. PREGABALIN [Interacting]
     Active Substance: PREGABALIN
     Dosage: UNK (MEDICATION ERROR) ; ;
     Route: 065
     Dates: start: 20181027, end: 20181027
  43. DIAZEPAM [Suspect]
     Active Substance: DIAZEPAM
     Indication: Product used for unknown indication
     Dosage: UNK
     Route: 065
  44. HEROIN [Suspect]
     Active Substance: DIAMORPHINE
     Indication: Drug rehabilitation
     Dosage: UNK
     Route: 065
  45. HEROIN [Suspect]
     Active Substance: DIAMORPHINE
     Indication: Product used for unknown indication
     Dosage: UNK
     Route: 065
     Dates: start: 20181027
  46. HEROIN [Suspect]
     Active Substance: DIAMORPHINE
     Dosage: UNK
     Route: 065
  47. HEROIN [Suspect]
     Active Substance: DIAMORPHINE
     Dosage: UNK
     Route: 065
  48. ALCOHOL [Suspect]
     Active Substance: ALCOHOL
     Indication: Product used for unknown indication
     Dosage: UNK
     Route: 065
  49. ALCOHOL [Suspect]
     Active Substance: ALCOHOL
     Dosage: UNK
     Route: 065
  50. ALCOHOL [Suspect]
     Active Substance: ALCOHOL
     Dosage: UNK
     Route: 065
  51. ALCOHOL [Suspect]
     Active Substance: ALCOHOL
     Dosage: UNK
     Route: 065
  52. ALCOHOL [Suspect]
     Active Substance: ALCOHOL
     Dosage: UNK
     Route: 065
  53. ALCOHOL [Suspect]
     Active Substance: ALCOHOL
     Dosage: UNK
     Route: 065
  54. ALCOHOL [Suspect]
     Active Substance: ALCOHOL
     Dosage: UNK
     Route: 065
  55. ALCOHOL [Suspect]
     Active Substance: ALCOHOL
     Dosage: UNK
     Route: 065
  56. ALCOHOL [Suspect]
     Active Substance: ALCOHOL
     Dosage: UNK
     Route: 065
  57. ALCOHOL [Suspect]
     Active Substance: ALCOHOL
     Dosage: UNK
     Route: 065
  58. ALCOHOL [Interacting]
     Active Substance: ALCOHOL
     Indication: Product used for unknown indication
     Dosage: UNK
     Route: 065
  59. ALCOHOL [Interacting]
     Active Substance: ALCOHOL
     Dosage: UNK
     Route: 065
  60. ALCOHOL [Interacting]
     Active Substance: ALCOHOL
     Dosage: UNK
     Route: 065
  61. ALCOHOL [Interacting]
     Active Substance: ALCOHOL
     Dosage: UNK
     Route: 065
  62. ALCOHOL [Interacting]
     Active Substance: ALCOHOL
     Dosage: UNK
     Route: 065
  63. TRAZODONE [Concomitant]
     Active Substance: TRAZODONE HYDROCHLORIDE
     Indication: Product used for unknown indication
     Dosage: UNK
     Route: 065
  64. TRAZODONE [Concomitant]
     Active Substance: TRAZODONE HYDROCHLORIDE
     Dosage: UNK
     Route: 065
  65. TRAZODONE [Concomitant]
     Active Substance: TRAZODONE HYDROCHLORIDE
     Dosage: UNK
     Route: 065
  66. TRAZODONE [Concomitant]
     Active Substance: TRAZODONE HYDROCHLORIDE
     Dosage: UNK
     Route: 065
  67. TRAZODONE [Concomitant]
     Active Substance: TRAZODONE HYDROCHLORIDE
     Dosage: UNK
     Route: 065
  68. TRAZODONE [Concomitant]
     Active Substance: TRAZODONE HYDROCHLORIDE
     Dosage: UNK
     Route: 065
  69. TRAZODONE [Concomitant]
     Active Substance: TRAZODONE HYDROCHLORIDE
     Dosage: UNK
     Route: 065
  70. TRAZODONE [Concomitant]
     Active Substance: TRAZODONE HYDROCHLORIDE
     Dosage: UNK
     Route: 065
  71. TRAZODONE [Concomitant]
     Active Substance: TRAZODONE HYDROCHLORIDE
     Dosage: UNK
  72. TRAZODONE [Concomitant]
     Active Substance: TRAZODONE HYDROCHLORIDE
     Dosage: UNK
  73. TRAZODONE [Concomitant]
     Active Substance: TRAZODONE HYDROCHLORIDE
     Dosage: UNK
  74. TRAZODONE [Concomitant]
     Active Substance: TRAZODONE HYDROCHLORIDE
     Dosage: UNK
  75. TRAZODONE [Concomitant]
     Active Substance: TRAZODONE HYDROCHLORIDE
     Dosage: UNK
  76. TRAZODONE [Concomitant]
     Active Substance: TRAZODONE HYDROCHLORIDE
     Dosage: UNK
  77. CAFFEINE CITRATE [Concomitant]
     Active Substance: CAFFEINE CITRATE
     Indication: Product used for unknown indication
     Dosage: UNK
     Route: 065
  78. PROPRANOLOL [Concomitant]
     Active Substance: PROPRANOLOL HYDROCHLORIDE
     Indication: Product used for unknown indication
     Dosage: UNK
     Route: 065
  79. PROPRANOLOL [Concomitant]
     Active Substance: PROPRANOLOL HYDROCHLORIDE
     Dosage: UNK
     Route: 065
  80. PROPRANOLOL [Concomitant]
     Active Substance: PROPRANOLOL HYDROCHLORIDE
     Dosage: UNK
     Route: 065
  81. PROPRANOLOL [Concomitant]
     Active Substance: PROPRANOLOL HYDROCHLORIDE
     Dosage: UNK
     Route: 065
  82. PROPRANOLOL [Concomitant]
     Active Substance: PROPRANOLOL HYDROCHLORIDE
     Dosage: UNK
     Route: 065
  83. PROPRANOLOL [Concomitant]
     Active Substance: PROPRANOLOL HYDROCHLORIDE
     Dosage: UNK
     Route: 065
  84. PROPRANOLOL [Concomitant]
     Active Substance: PROPRANOLOL HYDROCHLORIDE
     Dosage: UNK
     Route: 065
  85. PROPRANOLOL [Concomitant]
     Active Substance: PROPRANOLOL HYDROCHLORIDE
     Dosage: UNK
     Route: 065
  86. PROPRANOLOL [Concomitant]
     Active Substance: PROPRANOLOL HYDROCHLORIDE
     Dosage: UNK
  87. PROPRANOLOL [Concomitant]
     Active Substance: PROPRANOLOL HYDROCHLORIDE
     Dosage: UNK
  88. PROPRANOLOL [Concomitant]
     Active Substance: PROPRANOLOL HYDROCHLORIDE
     Dosage: UNK
  89. PROPRANOLOL [Concomitant]
     Active Substance: PROPRANOLOL HYDROCHLORIDE
     Dosage: UNK
  90. PROPRANOLOL [Concomitant]
     Active Substance: PROPRANOLOL HYDROCHLORIDE
     Dosage: UNK
  91. PROPRANOLOL [Concomitant]
     Active Substance: PROPRANOLOL HYDROCHLORIDE
  92. TEGRETOL [Concomitant]
     Active Substance: CARBAMAZEPINE
     Indication: Product used for unknown indication
     Dosage: UNK
     Route: 065
  93. TEGRETOL [Concomitant]
     Active Substance: CARBAMAZEPINE
     Dosage: UNK
     Route: 065
  94. TEGRETOL [Concomitant]
     Active Substance: CARBAMAZEPINE
     Dosage: UNK
     Route: 065
  95. TEGRETOL [Concomitant]
     Active Substance: CARBAMAZEPINE
     Dosage: UNK
     Route: 065
  96. TEGRETOL [Concomitant]
     Active Substance: CARBAMAZEPINE
     Dosage: UNK
     Route: 065
  97. TEGRETOL [Concomitant]
     Active Substance: CARBAMAZEPINE
     Dosage: UNK
     Route: 065
  98. TEGRETOL [Concomitant]
     Active Substance: CARBAMAZEPINE
     Dosage: UNK
     Route: 065
  99. TEGRETOL [Concomitant]
     Active Substance: CARBAMAZEPINE
     Dosage: UNK
     Route: 065
  100. TEGRETOL [Concomitant]
     Active Substance: CARBAMAZEPINE
     Dosage: UNK
     Route: 065
  101. TEGRETOL [Concomitant]
     Active Substance: CARBAMAZEPINE
     Dosage: UNK
     Route: 065
  102. TEGRETOL [Concomitant]
     Active Substance: CARBAMAZEPINE
     Dosage: UNK
     Route: 065
  103. TEGRETOL [Concomitant]
     Active Substance: CARBAMAZEPINE
     Dosage: UNK
     Route: 065
  104. TEGRETOL [Concomitant]
     Active Substance: CARBAMAZEPINE
     Dosage: UNK
     Route: 065
  105. TEGRETOL [Concomitant]
     Active Substance: CARBAMAZEPINE
     Dosage: UNK
     Route: 065
  106. TEGRETOL [Concomitant]
     Active Substance: CARBAMAZEPINE
     Dosage: UNK
     Route: 065
  107. TEGRETOL [Concomitant]
     Active Substance: CARBAMAZEPINE
     Dosage: UNK
     Route: 065
  108. TEGRETOL [Concomitant]
     Active Substance: CARBAMAZEPINE
     Dosage: UNK
     Route: 065
  109. TEGRETOL [Concomitant]
     Active Substance: CARBAMAZEPINE
     Dosage: UNK
     Route: 065
  110. TEGRETOL [Concomitant]
     Active Substance: CARBAMAZEPINE
     Dosage: UNK
     Route: 065
  111. TEGRETOL [Concomitant]
     Active Substance: CARBAMAZEPINE
     Dosage: UNK
     Route: 065
  112. TEGRETOL [Concomitant]
     Active Substance: CARBAMAZEPINE
     Dosage: UNK
     Route: 065
  113. TEGRETOL [Concomitant]
     Active Substance: CARBAMAZEPINE
     Dosage: UNK
     Route: 065
  114. TEGRETOL [Concomitant]
     Active Substance: CARBAMAZEPINE
     Dosage: UNK
     Route: 065
  115. TEGRETOL [Concomitant]
     Active Substance: CARBAMAZEPINE
     Dosage: UNK
     Route: 065
  116. TEGRETOL [Concomitant]
     Active Substance: CARBAMAZEPINE
     Dosage: UNK
     Route: 065
  117. TEGRETOL [Concomitant]
     Active Substance: CARBAMAZEPINE
     Dosage: UNK
     Route: 065
  118. TEGRETOL [Concomitant]
     Active Substance: CARBAMAZEPINE
     Dosage: UNK
     Route: 065
  119. TEGRETOL [Concomitant]
     Active Substance: CARBAMAZEPINE
     Dosage: UNK
     Route: 065
  120. TEGRETOL [Concomitant]
     Active Substance: CARBAMAZEPINE
     Dosage: UNK
     Route: 065
  121. TEGRETOL [Concomitant]
     Active Substance: CARBAMAZEPINE
     Dosage: UNK
     Route: 065
  122. TEGRETOL [Concomitant]
     Active Substance: CARBAMAZEPINE
     Dosage: UNK
     Route: 065
  123. TEGRETOL [Concomitant]
     Active Substance: CARBAMAZEPINE
     Dosage: UNK
     Route: 065
  124. TEGRETOL [Concomitant]
     Active Substance: CARBAMAZEPINE
     Dosage: UNK
     Route: 065
  125. TEGRETOL [Concomitant]
     Active Substance: CARBAMAZEPINE
     Dosage: UNK
     Route: 065
  126. TEGRETOL [Concomitant]
     Active Substance: CARBAMAZEPINE
     Dosage: UNK
     Route: 065
  127. TEGRETOL [Concomitant]
     Active Substance: CARBAMAZEPINE
     Dosage: UNK
     Route: 065
  128. TEGRETOL [Concomitant]
     Active Substance: CARBAMAZEPINE
     Dosage: UNK
     Route: 065
  129. TEGRETOL [Concomitant]
     Active Substance: CARBAMAZEPINE
     Dosage: UNK
  130. TEGRETOL [Concomitant]
     Active Substance: CARBAMAZEPINE
     Dosage: UNK
  131. TEGRETOL [Concomitant]
     Active Substance: CARBAMAZEPINE
     Dosage: UNK
  132. TEGRETOL [Concomitant]
     Active Substance: CARBAMAZEPINE
     Dosage: UNK
  133. TEGRETOL [Concomitant]
     Active Substance: CARBAMAZEPINE
     Dosage: UNK
  134. TEGRETOL [Concomitant]
     Active Substance: CARBAMAZEPINE
     Dosage: UNK
  135. TEGRETOL [Concomitant]
     Active Substance: CARBAMAZEPINE
     Dosage: UNK
  136. TEGRETOL [Concomitant]
     Active Substance: CARBAMAZEPINE
     Dosage: UNK
  137. TEGRETOL [Concomitant]
     Active Substance: CARBAMAZEPINE
     Dosage: UNK
  138. TEGRETOL [Concomitant]
     Active Substance: CARBAMAZEPINE
     Dosage: UNK
  139. TEGRETOL [Concomitant]
     Active Substance: CARBAMAZEPINE
     Dosage: UNK
  140. TEGRETOL [Concomitant]
     Active Substance: CARBAMAZEPINE
     Dosage: UNK
  141. TEGRETOL [Concomitant]
     Active Substance: CARBAMAZEPINE
     Dosage: UNK
  142. TEGRETOL [Concomitant]
     Active Substance: CARBAMAZEPINE
     Dosage: UNK
  143. TEGRETOL [Concomitant]
     Active Substance: CARBAMAZEPINE
     Dosage: UNK
  144. TEGRETOL [Concomitant]
     Active Substance: CARBAMAZEPINE
     Dosage: UNK
  145. TEGRETOL [Concomitant]
     Active Substance: CARBAMAZEPINE
     Dosage: UNK
  146. TEGRETOL [Concomitant]
     Active Substance: CARBAMAZEPINE
     Dosage: UNK
  147. TEGRETOL [Concomitant]
     Active Substance: CARBAMAZEPINE
     Dosage: UNK
  148. TEGRETOL [Concomitant]
     Active Substance: CARBAMAZEPINE
     Dosage: UNK
  149. TEGRETOL [Concomitant]
     Active Substance: CARBAMAZEPINE
     Dosage: UNK
  150. TEGRETOL [Concomitant]
     Active Substance: CARBAMAZEPINE
     Dosage: UNK
  151. TEGRETOL [Concomitant]
     Active Substance: CARBAMAZEPINE
     Dosage: UNK
  152. TEGRETOL [Concomitant]
     Active Substance: CARBAMAZEPINE
     Dosage: UNK
  153. TEGRETOL [Concomitant]
     Active Substance: CARBAMAZEPINE
     Dosage: UNK
  154. ALPRAZOLAM [Concomitant]
     Active Substance: ALPRAZOLAM
     Indication: Product used for unknown indication
     Dosage: UNK
     Route: 065
  155. ALPRAZOLAM [Concomitant]
     Active Substance: ALPRAZOLAM
     Dosage: UNK
     Route: 065
  156. ALPRAZOLAM [Concomitant]
     Active Substance: ALPRAZOLAM
     Dosage: UNK
     Route: 065
  157. ALPRAZOLAM [Concomitant]
     Active Substance: ALPRAZOLAM
     Dosage: UNK
     Route: 065
  158. ALPRAZOLAM [Concomitant]
     Active Substance: ALPRAZOLAM
     Dosage: UNK
     Route: 065
  159. ALPRAZOLAM [Concomitant]
     Active Substance: ALPRAZOLAM
     Dosage: UNK
     Route: 065
  160. ALPRAZOLAM [Concomitant]
     Active Substance: ALPRAZOLAM
     Dosage: UNK
     Route: 065
  161. ALPRAZOLAM [Concomitant]
     Active Substance: ALPRAZOLAM
     Dosage: UNK
     Route: 065
  162. ALPRAZOLAM [Concomitant]
     Active Substance: ALPRAZOLAM
     Dosage: UNK
     Route: 065
  163. ALPRAZOLAM [Concomitant]
     Active Substance: ALPRAZOLAM
     Dosage: UNK
     Route: 065
  164. ALPRAZOLAM [Concomitant]
     Active Substance: ALPRAZOLAM
     Dosage: UNK
     Route: 065
  165. ALPRAZOLAM [Concomitant]
     Active Substance: ALPRAZOLAM
     Dosage: UNK
  166. ALPRAZOLAM [Concomitant]
     Active Substance: ALPRAZOLAM
     Dosage: UNK
  167. ALPRAZOLAM [Concomitant]
     Active Substance: ALPRAZOLAM
     Dosage: UNK
  168. ALPRAZOLAM [Concomitant]
     Active Substance: ALPRAZOLAM
     Dosage: UNK
  169. ALPRAZOLAM [Concomitant]
     Active Substance: ALPRAZOLAM
     Dosage: UNK
  170. ALPRAZOLAM [Concomitant]
     Active Substance: ALPRAZOLAM
     Dosage: UNK
  171. ALPRAZOLAM [Concomitant]
     Active Substance: ALPRAZOLAM
     Dosage: UNK
  172. ALPRAZOLAM [Concomitant]
     Active Substance: ALPRAZOLAM
     Dosage: UNK
  173. ALPRAZOLAM [Concomitant]
     Active Substance: ALPRAZOLAM
     Dosage: UNK
  174. NOSCAPINE [Concomitant]
     Active Substance: NOSCAPINE
     Indication: Product used for unknown indication
     Dosage: UNK
     Route: 065
  175. NOSCAPINE [Concomitant]
     Active Substance: NOSCAPINE
     Dosage: UNK
     Route: 065
  176. NOSCAPINE [Concomitant]
     Active Substance: NOSCAPINE
     Dosage: UNK
     Route: 065
  177. NOSCAPINE [Concomitant]
     Active Substance: NOSCAPINE
     Dosage: UNK
     Route: 065
  178. NOSCAPINE [Concomitant]
     Active Substance: NOSCAPINE
     Dosage: UNK
     Route: 065
  179. NOSCAPINE [Concomitant]
     Active Substance: NOSCAPINE
     Dosage: UNK
     Route: 065
  180. NOSCAPINE [Concomitant]
     Active Substance: NOSCAPINE
     Dosage: UNK
     Route: 065
  181. NOSCAPINE [Concomitant]
     Active Substance: NOSCAPINE
     Dosage: UNK
     Route: 065
  182. NOSCAPINE [Concomitant]
     Active Substance: NOSCAPINE
     Dosage: UNK
     Route: 065
  183. NOSCAPINE [Concomitant]
     Active Substance: NOSCAPINE
     Dosage: UNK
     Route: 065
  184. NOSCAPINE [Concomitant]
     Active Substance: NOSCAPINE
     Dosage: UNK
     Route: 065
  185. NOSCAPINE [Concomitant]
     Active Substance: NOSCAPINE
     Dosage: UNK
     Route: 065
  186. NOSCAPINE [Concomitant]
     Active Substance: NOSCAPINE
     Dosage: UNK
     Route: 065
  187. NOSCAPINE [Concomitant]
     Active Substance: NOSCAPINE
     Dosage: UNK
     Route: 065
  188. NOSCAPINE [Concomitant]
     Active Substance: NOSCAPINE
     Dosage: UNK
     Route: 065
  189. NOSCAPINE [Concomitant]
     Active Substance: NOSCAPINE
     Dosage: UNK
     Route: 065
  190. NICOTINE [Concomitant]
     Active Substance: NICOTINE
     Indication: Product used for unknown indication
     Dosage: UNK
     Route: 065
  191. NICOTINE [Concomitant]
     Active Substance: NICOTINE
     Dosage: UNK
     Route: 065
  192. NICOTINE [Concomitant]
     Active Substance: NICOTINE
     Dosage: UNK
     Route: 065
  193. NICOTINE [Concomitant]
     Active Substance: NICOTINE
     Dosage: UNK
     Route: 065
  194. NICOTINE [Concomitant]
     Active Substance: NICOTINE
     Dosage: UNK
     Route: 065
  195. NICOTINE [Concomitant]
     Active Substance: NICOTINE
     Dosage: UNK
     Route: 065
  196. NICOTINE [Concomitant]
     Active Substance: NICOTINE
     Dosage: UNK
     Route: 065
  197. NICOTINE [Concomitant]
     Active Substance: NICOTINE
     Dosage: UNK
     Route: 065
  198. NICOTINE [Concomitant]
     Active Substance: NICOTINE
     Dosage: UNK
     Route: 065
  199. NICOTINE [Concomitant]
     Active Substance: NICOTINE
     Dosage: UNK
  200. NICOTINE [Concomitant]
     Active Substance: NICOTINE
     Dosage: UNK
  201. NICOTINE [Concomitant]
     Active Substance: NICOTINE
     Dosage: UNK
  202. NICOTINE [Concomitant]
     Active Substance: NICOTINE
     Dosage: UNK
  203. NICOTINE [Concomitant]
     Active Substance: NICOTINE
     Dosage: UNK
  204. NICOTINE [Concomitant]
     Active Substance: NICOTINE
     Dosage: UNK
  205. ACETAMINOPHEN [Concomitant]
     Active Substance: ACETAMINOPHEN
     Indication: Product used for unknown indication
     Dosage: UNK
     Route: 065
  206. ACETAMINOPHEN [Concomitant]
     Active Substance: ACETAMINOPHEN
     Dosage: UNK
     Route: 065
  207. ACETAMINOPHEN [Concomitant]
     Active Substance: ACETAMINOPHEN
     Dosage: UNK
     Route: 065
  208. ACETAMINOPHEN [Concomitant]
     Active Substance: ACETAMINOPHEN
     Dosage: UNK
     Route: 065
  209. ACETAMINOPHEN [Concomitant]
     Active Substance: ACETAMINOPHEN
     Dosage: UNK
     Route: 065
  210. ACETAMINOPHEN [Concomitant]
     Active Substance: ACETAMINOPHEN
     Dosage: UNK
     Route: 065
  211. ACETAMINOPHEN [Concomitant]
     Active Substance: ACETAMINOPHEN
     Dosage: UNK
     Route: 065
  212. ACETAMINOPHEN [Concomitant]
     Active Substance: ACETAMINOPHEN
     Dosage: UNK
     Route: 065
  213. ACETAMINOPHEN [Concomitant]
     Active Substance: ACETAMINOPHEN
     Dosage: UNK
  214. ACETAMINOPHEN [Concomitant]
     Active Substance: ACETAMINOPHEN
     Dosage: UNK
  215. ACETAMINOPHEN [Concomitant]
     Active Substance: ACETAMINOPHEN
     Dosage: UNK
  216. ACETAMINOPHEN [Concomitant]
     Active Substance: ACETAMINOPHEN
     Dosage: UNK
  217. ACETAMINOPHEN [Concomitant]
     Active Substance: ACETAMINOPHEN
     Dosage: UNK
  218. ACETAMINOPHEN [Concomitant]
     Active Substance: ACETAMINOPHEN
     Dosage: UNK
  219. DABIGATRAN [Concomitant]
     Active Substance: DABIGATRAN
     Indication: Product used for unknown indication
     Dosage: UNK
     Route: 065
  220. DABIGATRAN [Concomitant]
     Active Substance: DABIGATRAN
     Dosage: UNK
     Route: 065
  221. DABIGATRAN [Concomitant]
     Active Substance: DABIGATRAN
     Dosage: UNK
     Route: 065
  222. DABIGATRAN [Concomitant]
     Active Substance: DABIGATRAN
     Dosage: UNK
     Route: 065
  223. DABIGATRAN [Concomitant]
     Active Substance: DABIGATRAN
     Dosage: UNK
     Route: 065
  224. DABIGATRAN [Concomitant]
     Active Substance: DABIGATRAN
     Dosage: UNK
     Route: 065
  225. DABIGATRAN [Concomitant]
     Active Substance: DABIGATRAN
     Dosage: UNK
     Route: 065
  226. DABIGATRAN [Concomitant]
     Active Substance: DABIGATRAN
     Dosage: UNK
     Route: 065
  227. DABIGATRAN [Concomitant]
     Active Substance: DABIGATRAN
     Dosage: UNK
     Route: 065
  228. DABIGATRAN [Concomitant]
     Active Substance: DABIGATRAN
     Dosage: UNK
     Route: 065
  229. DABIGATRAN [Concomitant]
     Active Substance: DABIGATRAN
     Dosage: UNK
     Route: 065
  230. DABIGATRAN [Concomitant]
     Active Substance: DABIGATRAN
     Dosage: UNK
     Route: 065
  231. DABIGATRAN [Concomitant]
     Active Substance: DABIGATRAN
     Dosage: UNK
  232. DABIGATRAN [Concomitant]
     Active Substance: DABIGATRAN
     Dosage: UNK
  233. DABIGATRAN [Concomitant]
     Active Substance: DABIGATRAN
     Dosage: UNK
  234. DABIGATRAN [Concomitant]
     Active Substance: DABIGATRAN
     Dosage: UNK
  235. DABIGATRAN [Concomitant]
     Active Substance: DABIGATRAN
     Dosage: UNK
  236. DABIGATRAN [Concomitant]
     Active Substance: DABIGATRAN
     Dosage: UNK
  237. DABIGATRAN [Concomitant]
     Active Substance: DABIGATRAN
     Dosage: UNK
  238. DABIGATRAN [Concomitant]
     Active Substance: DABIGATRAN
     Dosage: UNK
  239. DABIGATRAN [Concomitant]
     Active Substance: DABIGATRAN
     Dosage: UNK
  240. DABIGATRAN [Concomitant]
     Active Substance: DABIGATRAN
     Dosage: UNK
  241. PAPAVERINE [Concomitant]
     Active Substance: PAPAVERINE
     Indication: Product used for unknown indication
     Dosage: UNK
     Route: 065
  242. PAPAVERINE [Concomitant]
     Active Substance: PAPAVERINE
     Dosage: UNK
     Route: 065
  243. PAPAVERINE [Concomitant]
     Active Substance: PAPAVERINE
     Dosage: UNK
     Route: 065
  244. PAPAVERINE [Concomitant]
     Active Substance: PAPAVERINE
     Dosage: UNK
     Route: 065
  245. PAPAVERINE [Concomitant]
     Active Substance: PAPAVERINE
     Dosage: UNK
     Route: 065
  246. PAPAVERINE [Concomitant]
     Active Substance: PAPAVERINE
     Dosage: UNK
     Route: 065
  247. PAPAVERINE [Concomitant]
     Active Substance: PAPAVERINE
     Dosage: UNK
     Route: 065
  248. PAPAVERINE [Concomitant]
     Active Substance: PAPAVERINE
     Dosage: UNK
     Route: 065
  249. PAPAVERINE [Concomitant]
     Active Substance: PAPAVERINE
     Dosage: UNK
  250. PAPAVERINE [Concomitant]
     Active Substance: PAPAVERINE
     Dosage: UNK
  251. PAPAVERINE [Concomitant]
     Active Substance: PAPAVERINE
     Dosage: UNK
  252. PAPAVERINE [Concomitant]
     Active Substance: PAPAVERINE
     Dosage: UNK
  253. PAPAVERINE [Concomitant]
     Active Substance: PAPAVERINE
     Dosage: UNK
  254. PAPAVERINE [Concomitant]
     Active Substance: PAPAVERINE
     Dosage: UNK
  255. CAFFEINE                           /00060502/ [Concomitant]
     Indication: Product used for unknown indication
     Dosage: UNK
     Route: 065
  256. CAFFEINE                           /00060502/ [Concomitant]
     Dosage: UNK
     Route: 065
  257. CAFFEINE [Concomitant]
     Active Substance: CAFFEINE
     Indication: Product used for unknown indication
     Dosage: UNK
     Route: 065
  258. CAFFEINE [Concomitant]
     Active Substance: CAFFEINE
     Indication: Product used for unknown indication
     Dosage: UNK
     Route: 065
  259. CAFFEINE [Concomitant]
     Active Substance: CAFFEINE
     Dosage: UNK
     Route: 065
  260. CAFFEINE [Concomitant]
     Active Substance: CAFFEINE
     Dosage: UNK
  261. CAFFEINE [Concomitant]
     Active Substance: CAFFEINE
     Dosage: UNK
  262. CAFFEINE [Concomitant]
     Active Substance: CAFFEINE
     Dosage: UNK
  263. CAFFEINE [Concomitant]
     Active Substance: CAFFEINE
     Dosage: UNK
  264. CAFFEINE [Concomitant]
     Active Substance: CAFFEINE
     Dosage: UNK
  265. CAFFEINE [Concomitant]
     Active Substance: CAFFEINE
     Dosage: UNK
  266. CAFFEINE [Concomitant]
     Active Substance: CAFFEINE
     Dosage: UNK
  267. CAFFEINE [Concomitant]
     Active Substance: CAFFEINE
     Dosage: UNK
  268. CAFFEINE [Concomitant]
     Active Substance: CAFFEINE
     Dosage: UNK
  269. CAFFEINE [Concomitant]
     Active Substance: CAFFEINE
     Dosage: UNK
  270. CAFFEINE [Concomitant]
     Active Substance: CAFFEINE
     Dosage: UNK
  271. CAFFEINE [Concomitant]
     Active Substance: CAFFEINE
     Dosage: UNK
  272. CAFFEINE [Concomitant]
     Active Substance: CAFFEINE
     Dosage: UNK
  273. CAFFEINE [Concomitant]
     Active Substance: CAFFEINE
     Dosage: UNK
  274. CAFFEINE [Concomitant]
     Active Substance: CAFFEINE
     Dosage: UNK
  275. CAFFEINE [Concomitant]
     Active Substance: CAFFEINE
     Dosage: UNK
  276. CAFFEINE [Concomitant]
     Active Substance: CAFFEINE
     Dosage: UNK
  277. CAFFEINE [Concomitant]
     Active Substance: CAFFEINE
     Dosage: UNK
  278. CAFFEINE [Concomitant]
     Active Substance: CAFFEINE
     Dosage: UNK
  279. CAFFEINE [Concomitant]
     Active Substance: CAFFEINE
     Dosage: UNK

REACTIONS (7)
  - Alcohol interaction [Fatal]
  - Intentional product misuse [Fatal]
  - Off label use [Fatal]
  - Drug interaction [Fatal]
  - Product use in unapproved indication [Fatal]
  - Overdose [Fatal]
  - Toxicity to various agents [Fatal]

NARRATIVE: CASE EVENT DATE: 20181027
